FAERS Safety Report 10839653 (Version 1)
Quarter: 2015Q1

REPORT INFORMATION
  Report Type: Report from Study
  Country: US (occurrence: US)
  Receive Date: 20150220
  Receipt Date: 20150220
  Transmission Date: 20150721
  Serious: No
  Sender: FDA-Public Use
  Company Number: US-ABBVIE-14P-163-1233023-00

PATIENT
  Age: 57 Year
  Sex: Female

DRUGS (27)
  1. SPIRIVA [Concomitant]
     Active Substance: TIOTROPIUM BROMIDE MONOHYDRATE
     Indication: CHRONIC OBSTRUCTIVE PULMONARY DISEASE
  2. VITAMIN B12 [Concomitant]
     Active Substance: CYANOCOBALAMIN
     Indication: PRODUCT USED FOR UNKNOWN INDICATION
  3. ADVAIR HFA [Suspect]
     Active Substance: FLUTICASONE PROPIONATE\SALMETEROL XINAFOATE
     Indication: CHRONIC OBSTRUCTIVE PULMONARY DISEASE
  4. DICYCLOMINE [Concomitant]
     Active Substance: DICYCLOMINE HYDROCHLORIDE
     Indication: GASTRIC DISORDER
  5. CYMBALTA [Concomitant]
     Active Substance: DULOXETINE HYDROCHLORIDE
     Indication: BIPOLAR DISORDER
     Dosage: 30MG AND 60MG AT BEDTIME
  6. XANAX [Concomitant]
     Active Substance: ALPRAZOLAM
     Indication: PAIN
  7. ENTOCORT EC [Concomitant]
     Active Substance: BUDESONIDE
     Indication: CROHN^S DISEASE
     Dosage: 2 PILLS
     Route: 048
  8. FOLIC ACID. [Concomitant]
     Active Substance: FOLIC ACID
     Indication: PRODUCT USED FOR UNKNOWN INDICATION
  9. ZANAFLEX [Concomitant]
     Active Substance: TIZANIDINE HYDROCHLORIDE
     Indication: PAIN
     Dosage: 1 IN EVERY 6 HOURS
  10. HUMIRA [Suspect]
     Active Substance: ADALIMUMAB
     Dates: start: 20140415, end: 20140415
  11. OXYCONTIN [Concomitant]
     Active Substance: OXYCODONE HYDROCHLORIDE
     Indication: PAIN
  12. HUMIRA [Suspect]
     Active Substance: ADALIMUMAB
     Indication: CROHN^S DISEASE
     Dates: start: 20140401, end: 20140401
  13. LOMOTIL [Concomitant]
     Active Substance: ATROPINE SULFATE\DIPHENOXYLATE HYDROCHLORIDE
     Indication: PRODUCT USED FOR UNKNOWN INDICATION
     Dosage: 1 FOUR TIMES A DAY AS NEEDED
     Route: 048
  14. ALBUTEROL. [Concomitant]
     Active Substance: ALBUTEROL
     Indication: CHRONIC OBSTRUCTIVE PULMONARY DISEASE
     Dosage: PER BREATHING MACHINE
  15. NEURONTIN [Concomitant]
     Active Substance: GABAPENTIN
     Indication: PAIN
  16. NEURONTIN [Concomitant]
     Active Substance: GABAPENTIN
     Indication: SEIZURE
  17. NYSTATIN. [Concomitant]
     Active Substance: NYSTATIN
     Indication: CANDIDA INFECTION
     Dosage: SWISH AND SWALLOW
  18. PRENATAL VITAMINS WITH IRON [Concomitant]
     Indication: PRODUCT USED FOR UNKNOWN INDICATION
  19. AMBIEN [Concomitant]
     Active Substance: ZOLPIDEM TARTRATE
     Indication: INSOMNIA
     Dosage: AT BED TIME
  20. NYSTATIN. [Suspect]
     Active Substance: NYSTATIN
     Indication: CANDIDA INFECTION
     Route: 048
  21. FENTANYL. [Concomitant]
     Active Substance: FENTANYL
     Indication: PAIN
     Dosage: PATCH
  22. HUMIRA [Suspect]
     Active Substance: ADALIMUMAB
     Dates: start: 20140504, end: 20140504
  23. RESTASIS [Concomitant]
     Active Substance: CYCLOSPORINE
     Indication: DRY EYE
  24. PRILOSEC [Concomitant]
     Active Substance: OMEPRAZOLE MAGNESIUM
     Indication: GASTROOESOPHAGEAL REFLUX DISEASE
  25. OXYGEN. [Concomitant]
     Active Substance: OXYGEN
     Indication: OXYGEN SATURATION DECREASED
     Dosage: CONTINUOUSLY ^BUT USES AS NEEDED^
  26. METHOTREXATE [Concomitant]
     Active Substance: METHOTREXATE
     Indication: PRODUCT USED FOR UNKNOWN INDICATION
  27. VITAMIN D [Concomitant]
     Active Substance: CHOLECALCIFEROL
     Indication: PRODUCT USED FOR UNKNOWN INDICATION

REACTIONS (7)
  - Oxygen saturation decreased [Not Recovered/Not Resolved]
  - Local swelling [Not Recovered/Not Resolved]
  - Candida infection [Not Recovered/Not Resolved]
  - Erythema [Not Recovered/Not Resolved]
  - Vomiting [Unknown]
  - Scratch [Unknown]
  - Burning sensation [Unknown]

NARRATIVE: CASE EVENT DATE: 20140423
